FAERS Safety Report 9501091 (Version 1)
Quarter: 2013Q1

REPORT INFORMATION
  Report Type: Spontaneous
  Country: US (occurrence: None)
  Receive Date: 20130117
  Receipt Date: 20130117
  Transmission Date: 20140127
  Serious: Yes (Other)
  Sender: FDA-Public Use
  Company Number: E2B_00000332

PATIENT
  Age: 5 Year
  Sex: Male
  Weight: 22.68 kg

DRUGS (2)
  1. CEFDINIR [Suspect]
     Indication: SINUSITIS
     Route: 048
     Dates: start: 20120725
  2. TYLENOL [Concomitant]

REACTIONS (1)
  - Haematochezia [None]
